FAERS Safety Report 24618042 (Version 2)
Quarter: 2024Q4

REPORT INFORMATION
  Report Type: Spontaneous
  Country: US (occurrence: US)
  Receive Date: 20241114
  Receipt Date: 20241129
  Transmission Date: 20250115
  Serious: Yes (Hospitalization)
  Sender: TEVA
  Company Number: US-TEVA-VS-3262620

PATIENT
  Age: 71 Year
  Sex: Male

DRUGS (9)
  1. VANCOMYCIN [Suspect]
     Active Substance: VANCOMYCIN
     Indication: Device related infection
     Route: 048
  2. CEFAZOLIN [Suspect]
     Active Substance: CEFAZOLIN
     Indication: Device related infection
     Route: 042
  3. CEFAZOLIN [Suspect]
     Active Substance: CEFAZOLIN
     Indication: Device related infection
     Route: 042
  4. TOBRAMYCIN [Suspect]
     Active Substance: TOBRAMYCIN\TOBRAMYCIN SULFATE
     Indication: Device related infection
     Dosage: ANTIBIOTIC-LOADED BONE CEMENT SPACER
     Route: 014
  5. TOBRAMYCIN [Suspect]
     Active Substance: TOBRAMYCIN\TOBRAMYCIN SULFATE
     Indication: Device related infection
     Dosage: ANTIBIOTIC-LOADED BONE CEMENT SPACER
     Route: 014
  6. GENTAMICIN [Suspect]
     Active Substance: GENTAMICIN
     Indication: Device related infection
     Dosage: STIMULAN BEADS CONTAINING GENTAMICIN AND VANCOMYCIN.
     Route: 014
  7. VANCOMYCIN [Suspect]
     Active Substance: VANCOMYCIN
     Indication: Device related infection
     Dosage: STIMULAN BEADS CONTAINING GENTAMICIN AND VANCOMYCIN.
     Route: 014
  8. VANCOMYCIN [Suspect]
     Active Substance: VANCOMYCIN
     Indication: Device related infection
     Dosage: ANTIBIOTIC-LOADED BONE CEMENT SPACER
     Route: 014
  9. VANCOMYCIN [Suspect]
     Active Substance: VANCOMYCIN
     Indication: Device related infection
     Dosage: ANTIBIOTIC-LOADED BONE CEMENT SPACER
     Route: 014

REACTIONS (2)
  - Acute kidney injury [Recovered/Resolved]
  - Drug level increased [Recovering/Resolving]
